FAERS Safety Report 12957931 (Version 1)
Quarter: 2016Q4

REPORT INFORMATION
  Report Type: Other
  Country: BR (occurrence: BR)
  Receive Date: 20161118
  Receipt Date: 20161118
  Transmission Date: 20170207
  Serious: Yes (Hospitalization)
  Sender: FDA-Public Use
  Company Number: BR--2016-BR-000003

PATIENT
  Age: 37 Year
  Sex: Female

DRUGS (1)
  1. LOSARTAN POTASSIUM TABLETS USP, 50 MG (VIVIMED) [Suspect]
     Active Substance: LOSARTAN POTASSIUM
     Indication: BLOOD PRESSURE MANAGEMENT
     Dosage: 50 MG PER DAY

REACTIONS (3)
  - Exposure during pregnancy [Unknown]
  - Oligohydramnios [Unknown]
  - Ductus venosus agenesis [Unknown]
